FAERS Safety Report 10626952 (Version 2)
Quarter: 2015Q1

REPORT INFORMATION
  Report Type: Spontaneous
  Country: SI (occurrence: SI)
  Receive Date: 20141204
  Receipt Date: 20150109
  Transmission Date: 20150720
  Serious: Yes (Other)
  Sender: FDA-Public Use
  Company Number: SI-MERCK-1412SVN002148

PATIENT
  Age: 68 Year
  Sex: Male
  Weight: 134 kg

DRUGS (7)
  1. GLUCOBAY [Concomitant]
     Active Substance: ACARBOSE
     Dosage: UNK
  2. LEVEMIR [Concomitant]
     Active Substance: INSULIN DETEMIR
     Indication: DIABETES MELLITUS
     Dosage: UNK
  3. BYETTA [Concomitant]
     Active Substance: EXENATIDE
     Indication: DIABETES MELLITUS
     Dosage: TOTAL DAILY DOSE 20 MICROGRAM
     Dates: start: 20110322, end: 20140305
  4. JANUVIA [Suspect]
     Active Substance: SITAGLIPTIN PHOSPHATE
     Indication: DIABETES MELLITUS
     Dosage: 100 MG, ONCE DAILY
     Route: 048
     Dates: start: 20090108, end: 20100510
  5. NOVORAPID [Concomitant]
     Active Substance: INSULIN ASPART
     Indication: DIABETES MELLITUS
     Dosage: UNK
  6. INSULATARD (INSULIN HUMAN, ISOPHANE) [Concomitant]
     Dosage: UNK
  7. GLIMEPIRIDE. [Concomitant]
     Active Substance: GLIMEPIRIDE
     Indication: DIABETES MELLITUS
     Dosage: DAILY DOSAGE 120MG
     Route: 048
     Dates: start: 20050217, end: 20101108

REACTIONS (1)
  - Gallbladder cancer [Recovered/Resolved]

NARRATIVE: CASE EVENT DATE: 20140728
